FAERS Safety Report 5418977-4 (Version None)
Quarter: 2007Q3

REPORT INFORMATION
  Report Type: 
  Country: None (occurrence: None)
  Receive Date: 20070817
  Receipt Date: 20070807
  Transmission Date: 20080115
  Serious: Yes (Other)
  Sender: FDA-Public Use
  Company Number: US-PFIZER INC-2007066249

PATIENT
  Sex: Male
  Weight: 56.7 kg

DRUGS (2)
  1. FLUCONAZOLE [Suspect]
     Indication: FUNGAL INFECTION
     Dates: start: 20070718, end: 20070805
  2. LOPERAMIDE HCL [Concomitant]

REACTIONS (2)
  - ADVERSE DRUG REACTION [None]
  - IRRITABLE BOWEL SYNDROME [None]
